FAERS Safety Report 20209073 (Version 5)
Quarter: 2023Q1

REPORT INFORMATION
  Report Type: Report from Study
  Country: JP (occurrence: JP)
  Receive Date: 20211220
  Receipt Date: 20230324
  Transmission Date: 20230418
  Serious: Yes (Hospitalization, Other)
  Sender: FDA-Public Use
  Company Number: JP-NAPPMUNDI-GBR-2021-0092753

PATIENT
  Age: 80 Year
  Sex: Male

DRUGS (55)
  1. OXYCONTIN [Suspect]
     Active Substance: OXYCODONE HYDROCHLORIDE
     Indication: Pain
     Dosage: UNK
     Route: 048
  2. OXYCONTIN [Suspect]
     Active Substance: OXYCODONE HYDROCHLORIDE
     Dosage: 10 MG, DAILY
     Route: 048
  3. OXYCONTIN [Suspect]
     Active Substance: OXYCODONE HYDROCHLORIDE
     Dosage: 20 MG, DAILY
     Route: 048
  4. OXYCONTIN [Suspect]
     Active Substance: OXYCODONE HYDROCHLORIDE
     Dosage: 5 MILLIGRAM, Q12H
     Route: 048
     Dates: start: 20211211
  5. OXYCONTIN [Suspect]
     Active Substance: OXYCODONE HYDROCHLORIDE
     Dosage: 10 MILLIGRAM, Q12H
     Route: 048
     Dates: start: 20211106, end: 20211210
  6. OXYCONTIN [Suspect]
     Active Substance: OXYCODONE HYDROCHLORIDE
     Dosage: 5 MILLIGRAM, Q12H
     Route: 048
     Dates: start: 20211023, end: 20211105
  7. SYMPROIC [Concomitant]
     Active Substance: NALDEMEDINE
     Indication: Constipation
     Dosage: UNK
     Route: 065
  8. SYMPROIC [Concomitant]
     Active Substance: NALDEMEDINE
     Dosage: UNK
     Route: 065
  9. CALONAL [Concomitant]
     Active Substance: ACETAMINOPHEN
     Indication: Pain
     Dosage: UNK
     Route: 065
     Dates: start: 20220122, end: 20220808
  10. CALONAL [Concomitant]
     Active Substance: ACETAMINOPHEN
     Indication: Back pain
  11. TRELEGY ELLIPTA [Concomitant]
     Active Substance: FLUTICASONE FUROATE\UMECLIDINIUM BROMIDE\VILANTEROL TRIFENATATE
     Indication: Product used for unknown indication
     Dosage: UNK
     Route: 065
     Dates: end: 20220207
  12. NIFEDIPINE [Concomitant]
     Active Substance: NIFEDIPINE
     Indication: Product used for unknown indication
     Dosage: UNK
     Route: 065
  13. JANUVIA [Concomitant]
     Active Substance: SITAGLIPTIN PHOSPHATE
     Indication: Product used for unknown indication
     Dosage: UNK
     Route: 065
  14. JANUVIA [Concomitant]
     Active Substance: SITAGLIPTIN PHOSPHATE
     Dosage: UNK
     Route: 065
  15. CYTOTEC [Concomitant]
     Active Substance: MISOPROSTOL
     Indication: Product used for unknown indication
     Dosage: UNK
     Route: 065
  16. CYTOTEC [Concomitant]
     Active Substance: MISOPROSTOL
     Indication: Prophylaxis
     Dosage: UNK
     Route: 065
  17. ACETAMINOPHEN [Concomitant]
     Active Substance: ACETAMINOPHEN
     Indication: Pain
     Dosage: UNK
     Route: 065
     Dates: start: 20211023, end: 20220121
  18. ACETAMINOPHEN [Concomitant]
     Active Substance: ACETAMINOPHEN
     Dosage: UNK
     Route: 065
     Dates: start: 20220809
  19. MAGNESIUM OXIDE [Concomitant]
     Active Substance: MAGNESIUM OXIDE
     Indication: Prophylaxis
     Dosage: UNK
     Route: 065
     Dates: start: 20211023
  20. MAGNESIUM OXIDE [Concomitant]
     Active Substance: MAGNESIUM OXIDE
     Indication: Constipation
     Dosage: UNK
     Route: 065
     Dates: end: 20220808
  21. Novamin [Concomitant]
     Indication: Prophylaxis
     Dosage: UNK
     Route: 065
     Dates: start: 20211023, end: 20211126
  22. FLUVOXAMINE MALEATE [Concomitant]
     Active Substance: FLUVOXAMINE MALEATE
     Indication: Depressive symptom
     Dosage: UNK
     Route: 065
     Dates: start: 20211113, end: 20220808
  23. FLUVOXAMINE MALEATE [Concomitant]
     Active Substance: FLUVOXAMINE MALEATE
     Dosage: UNK
     Route: 065
     Dates: end: 20220809
  24. KETOPROFEN [Concomitant]
     Active Substance: KETOPROFEN
     Indication: Fall
     Dosage: UNK
     Route: 065
     Dates: start: 20220416, end: 20220513
  25. KETOPROFEN [Concomitant]
     Active Substance: KETOPROFEN
     Indication: Back pain
  26. CALCIUM CHLORIDE ANHYDROUS\POTASSIUM CHLORIDE\SODIUM CHLORIDE\SODIUM L [Concomitant]
     Active Substance: CALCIUM CHLORIDE ANHYDROUS\POTASSIUM CHLORIDE\SODIUM CHLORIDE\SODIUM LACTATE
     Indication: Thrombotic cerebral infarction
     Dosage: UNK
     Route: 065
     Dates: start: 20220803, end: 20220818
  27. FAMOTIDINE [Concomitant]
     Active Substance: FAMOTIDINE
     Indication: Thrombotic cerebral infarction
     Dosage: UNK
     Route: 065
     Dates: start: 20220803, end: 20220803
  28. METOCLOPRAMIDE HYDROCHLORIDE [Concomitant]
     Active Substance: METOCLOPRAMIDE HYDROCHLORIDE
     Indication: Thrombotic cerebral infarction
     Dosage: UNK
     Route: 065
     Dates: start: 20220803, end: 20220803
  29. SOLDEM 3A [Concomitant]
     Active Substance: CARBOHYDRATES\POTASSIUM CHLORIDE\SODIUM CHLORIDE\SODIUM LACTATE
     Indication: Thrombotic cerebral infarction
     Dosage: UNK
     Route: 065
     Dates: start: 20220803, end: 20220804
  30. ARGATROBAN [Concomitant]
     Active Substance: ARGATROBAN
     Indication: Thrombotic cerebral infarction
     Dosage: UNK
     Route: 065
     Dates: start: 20220803, end: 20220809
  31. HEPARIN SODIUM [Concomitant]
     Active Substance: HEPARIN SODIUM
     Indication: Thrombotic cerebral infarction
     Dosage: UNK
     Route: 065
     Dates: start: 20220803
  32. SODIUM CHLORIDE [Concomitant]
     Active Substance: SODIUM CHLORIDE
     Indication: Thrombotic cerebral infarction
     Dosage: UNK
     Route: 065
     Dates: start: 20220805, end: 20220809
  33. SODIUM CHLORIDE [Concomitant]
     Active Substance: SODIUM CHLORIDE
     Indication: COVID-19
     Dosage: UNK
     Route: 065
     Dates: start: 20220814, end: 20220823
  34. SODIUM CHLORIDE [Concomitant]
     Active Substance: SODIUM CHLORIDE
     Indication: Urinary tract infection
     Dosage: UNK
     Dates: start: 20220818, end: 20220825
  35. LANSOPRAZOLE [Concomitant]
     Active Substance: LANSOPRAZOLE
     Indication: Prophylaxis
     Dosage: UNK
     Route: 065
     Dates: start: 20220805
  36. ASPIRIN [Concomitant]
     Active Substance: ASPIRIN
     Indication: Thrombotic cerebral infarction
     Dosage: UNK
     Route: 065
     Dates: start: 20220805
  37. ROSUVASTATIN CALCIUM [Concomitant]
     Active Substance: ROSUVASTATIN CALCIUM
     Indication: Dyslipidaemia
     Dosage: UNK
     Route: 065
     Dates: start: 20220805
  38. MINITRO [Concomitant]
     Indication: Hypertension
     Dosage: UNK
     Route: 065
     Dates: start: 20220805
  39. LINAGLIPTIN [Concomitant]
     Active Substance: LINAGLIPTIN
     Indication: Product used for unknown indication
     Dosage: UNK
     Route: 065
     Dates: start: 20220809
  40. REBAMIPIDE [Concomitant]
     Active Substance: REBAMIPIDE
     Indication: Prophylaxis
     Dosage: UNK
     Route: 065
     Dates: start: 20220809
  41. MAGNESIUM OXIDE [Concomitant]
     Active Substance: MAGNESIUM OXIDE
     Indication: Constipation
     Dosage: UNK
     Route: 065
     Dates: start: 20220809
  42. MAGNESIUM OXIDE [Concomitant]
     Active Substance: MAGNESIUM OXIDE
     Indication: Prophylaxis
  43. SENNOSIDES [Concomitant]
     Active Substance: SENNOSIDES
     Indication: Constipation
     Dosage: UNK
     Route: 065
     Dates: start: 20220810
  44. VEKLURY [Concomitant]
     Active Substance: REMDESIVIR
     Indication: COVID-19
     Dosage: UNK
     Route: 065
     Dates: start: 20220814, end: 20220823
  45. Distilled water [Concomitant]
     Indication: COVID-19
     Dosage: UNK
     Route: 065
     Dates: start: 20220814, end: 20220823
  46. ACETAMINOPHEN [Concomitant]
     Active Substance: ACETAMINOPHEN
     Indication: Oropharyngeal pain
     Dosage: UNK
     Route: 065
     Dates: start: 20220815, end: 20220815
  47. ACETAMINOPHEN [Concomitant]
     Active Substance: ACETAMINOPHEN
     Indication: Headache
  48. AMINO ACIDS\DEXTROSE\ELECTROLYTES NOS\VITAMINS [Concomitant]
     Active Substance: AMINO ACIDS\DEXTROSE\ELECTROLYTES NOS\VITAMINS
     Indication: COVID-19
     Dosage: UNK
     Route: 065
     Dates: start: 20220816
  49. CYANOCOBALAMIN\PYRIDOXINE HYDROCHLORIDE\THIAMINE [Concomitant]
     Active Substance: CYANOCOBALAMIN\PYRIDOXINE HYDROCHLORIDE\THIAMINE
     Indication: COVID-19
     Dosage: UNK
     Route: 065
     Dates: start: 20220816
  50. CEFTRIAXONE SODIUM [Concomitant]
     Active Substance: CEFTRIAXONE SODIUM
     Indication: Urinary tract infection
     Dosage: UNK
     Route: 065
     Dates: start: 20220818, end: 20220825
  51. SODIUM CHLORIDE [Concomitant]
     Active Substance: SODIUM CHLORIDE
     Indication: Urinary tract infection
     Dosage: UNK
     Route: 065
     Dates: start: 20220818, end: 20220825
  52. AMBROXOL HYDROCHLORIDE [Concomitant]
     Active Substance: AMBROXOL HYDROCHLORIDE
     Indication: Productive cough
     Dosage: UNK
     Dates: start: 20220818
  53. TRANEXAMIC ACID [Concomitant]
     Active Substance: TRANEXAMIC ACID
     Indication: Oropharyngeal pain
     Dosage: UNK
     Route: 065
     Dates: start: 20220823
  54. HUMULIN R [Concomitant]
     Active Substance: INSULIN HUMAN
     Indication: Blood glucose increased
     Dosage: UNK
     Route: 065
     Dates: start: 20220819, end: 20220822
  55. SODIUM CHLORIDE [Concomitant]
     Active Substance: SODIUM CHLORIDE
     Indication: Hyponatraemia
     Dosage: UNK
     Route: 065
     Dates: start: 20220819

REACTIONS (16)
  - Thrombotic cerebral infarction [Recovering/Resolving]
  - COVID-19 [Recovering/Resolving]
  - Delirium [Recovered/Resolved]
  - Depressive symptom [Recovering/Resolving]
  - Fall [Recovering/Resolving]
  - Back pain [Recovering/Resolving]
  - Back pain [Recovering/Resolving]
  - Constipation [Recovering/Resolving]
  - Headache [Recovered/Resolved]
  - Oropharyngeal pain [Recovering/Resolving]
  - Constipation [Recovered/Resolved]
  - Productive cough [Recovering/Resolving]
  - Urinary tract infection [Recovered/Resolved]
  - Dyslipidaemia [Recovering/Resolving]
  - Back pain [Recovering/Resolving]
  - Hypertension [Recovering/Resolving]

NARRATIVE: CASE EVENT DATE: 20211030
